FAERS Safety Report 8816888 (Version 2)
Quarter: 2013Q1

REPORT INFORMATION
  Report Type: Spontaneous
  Country: FR (occurrence: None)
  Receive Date: 20121002
  Receipt Date: 20121015
  Transmission Date: 20140127
  Serious: Yes (Hospitalization)
  Sender: FDA-Public Use
  Company Number: 7162137

PATIENT
  Age: 84 Year
  Sex: Male

DRUGS (6)
  1. PREVISCAN [Suspect]
     Indication: PROPHYLAXIS
     Dosage: 0.75 DF IN THE MORNING AND AT MIDDAY, 1 DF IN THE EVENING.??THERAPY DATES: LONG TERM
     Route: 048
     Dates: end: 20120626
  2. LEVOTHYROX [Suspect]
     Indication: HYPOTHYROIDISM
     Route: 048
  3. STABLON (TIANEPTINE) (12.5 MG, COATED TABLET) (TIANEPTINE) [Concomitant]
  4. IMOVANE (ZOPICLONE) (7.5 MG, COATED TABLET) (ZOPICLONE) [Concomitant]
  5. SECTRAL (ACEBUTOLOL HYDROCHLORIDE) (200) (ACEBUTOLOL) [Concomitant]
  6. MOVICOL (NULYTELY  /01053601/) (SODIUM CHLORIDE, SODIUM BICARBONATE, POTASSIUM CHLORIDE, MACROGOL 3350) [Concomitant]

REACTIONS (5)
  - Muscle haemorrhage [None]
  - Drug interaction [None]
  - Arthralgia [None]
  - International normalised ratio increased [None]
  - Haemoglobin decreased [None]
